FAERS Safety Report 5594753-7 (Version None)
Quarter: 2007Q4

REPORT INFORMATION
  Report Type: 
  Country: None (occurrence: None)
  Receive Date: 20071218
  Receipt Date: 20070820
  Transmission Date: 20080405
  Serious: Yes (Hospitalization, Other)
  Sender: FDA-Public Use
  Company Number: 2005149092

PATIENT
  Sex: Female

DRUGS (3)
  1. BEXTRA [Suspect]
     Indication: BACK INJURY
     Dosage: 40 MG (20 MG,3 IN 1 D)
     Dates: start: 20020101
  2. BEXTRA [Suspect]
     Indication: NECK INJURY
     Dosage: 40 MG (20 MG,3 IN 1 D)
     Dates: start: 20020101
  3. VIOXX [Suspect]

REACTIONS (3)
  - CARDIAC FAILURE [None]
  - DEPRESSION [None]
  - RENAL FAILURE [None]
